FAERS Safety Report 18751834 (Version 2)
Quarter: 2021Q1

REPORT INFORMATION
  Report Type: Spontaneous
  Country: IN (occurrence: IN)
  Receive Date: 20210118
  Receipt Date: 20210126
  Transmission Date: 20210419
  Serious: Yes (Life-Threatening, Hospitalization, Other)
  Sender: FDA-Public Use
  Company Number: IN-SA-2021SA011675

PATIENT
  Age: 48 Year
  Sex: Female

DRUGS (13)
  1. NORADRENALINE MYX [Concomitant]
  2. LEVOFLOXACIN. [Suspect]
     Active Substance: LEVOFLOXACIN
  3. ACETAMINOPHEN. [Concomitant]
     Active Substance: ACETAMINOPHEN
     Indication: PYREXIA
     Dosage: 500MG
  4. MYCOPHENOLATE MOFETIL. [Concomitant]
     Active Substance: MYCOPHENOLATE MOFETIL
  5. DTPA (PENTETIC ACID) [Concomitant]
     Active Substance: TECHNETIUM TC-99M PENTETATE
  6. THYMOGLOBULIN [Suspect]
     Active Substance: LAPINE T-LYMPHOCYTE IMMUNE GLOBULIN
     Dosage: UNK
  7. BRODACTAM [Suspect]
     Active Substance: PIPERACILLIN SODIUM\TAZOBACTAM SODIUM
  8. PIPERACILLIN. [Suspect]
     Active Substance: PIPERACILLIN SODIUM
  9. TACROLIMUS. [Concomitant]
     Active Substance: TACROLIMUS
     Dosage: 81 MG
  10. MEROPENEM. [Suspect]
     Active Substance: MEROPENEM
  11. METHYLPREDNISOLONE. [Concomitant]
     Active Substance: METHYLPREDNISOLONE
     Dosage: 500MG
  12. DIRETIC [Suspect]
     Active Substance: FUROSEMIDE\SPIRONOLACTONE
  13. DIPHENHYDRAMINE. [Concomitant]
     Active Substance: DIPHENHYDRAMINE
     Dosage: 500MG

REACTIONS (18)
  - Infection [Unknown]
  - Arthralgia [Unknown]
  - Pyrexia [Unknown]
  - Hypotension [Unknown]
  - Lactic acidosis [Unknown]
  - COVID-19 [Unknown]
  - Crepitations [Unknown]
  - Sepsis [Unknown]
  - Dyspnoea [Unknown]
  - Diabetic nephropathy [Unknown]
  - Cytokine storm [Unknown]
  - Haemorrhage [Unknown]
  - Fall [Unknown]
  - Pneumonitis [Unknown]
  - Anaphylactic reaction [Unknown]
  - Diabetic retinopathy [Unknown]
  - Rash [Unknown]
  - Serum sickness [Unknown]
